FAERS Safety Report 4755647-X (Version None)
Quarter: 2005Q3

REPORT INFORMATION
  Report Type: 
  Country: None (occurrence: None)
  Receive Date: 20050830
  Receipt Date: 20050614
  Transmission Date: 20060218
  Serious: No
  Sender: FDA-Public Use
  Company Number: US-BRISTOL-MYERS SQUIBB COMPANY-13002050

PATIENT
  Age: 57 Year
  Sex: Female
  Weight: 61 kg

DRUGS (4)
  1. ABILIFY [Suspect]
     Dates: start: 20050501
  2. ESTRADIOL [Concomitant]
  3. CALCIUM GLUCONATE [Concomitant]
  4. VITAMINS [Concomitant]

REACTIONS (4)
  - CONTUSION [None]
  - FATIGUE [None]
  - MYALGIA [None]
  - SOMNOLENCE [None]
